FAERS Safety Report 25086027 (Version 1)
Quarter: 2025Q1

REPORT INFORMATION
  Report Type: Report from Study
  Country: US (occurrence: US)
  Receive Date: 20250317
  Receipt Date: 20250317
  Transmission Date: 20250409
  Serious: Yes (Hospitalization, Other)
  Sender: PFIZER
  Company Number: US-PFIZER INC-PV202500012041

PATIENT
  Age: 77 Year
  Sex: Male

DRUGS (3)
  1. IBRANCE [Suspect]
     Active Substance: PALBOCICLIB
     Indication: Breast cancer
     Route: 048
     Dates: start: 20250109
  2. IBRANCE [Suspect]
     Active Substance: PALBOCICLIB
     Route: 048
  3. FULVESTRANT [Concomitant]
     Active Substance: FULVESTRANT

REACTIONS (4)
  - Dysphagia [Unknown]
  - Metastases to central nervous system [Unknown]
  - White blood cell count decreased [Not Recovered/Not Resolved]
  - Blood glucose increased [Unknown]

NARRATIVE: CASE EVENT DATE: 20250101
